APPROVED DRUG PRODUCT: TADALAFIL
Active Ingredient: TADALAFIL
Strength: 20MG
Dosage Form/Route: TABLET;ORAL
Application: A210255 | Product #001 | TE Code: AB2
Applicant: CIPLA LTD
Approved: Feb 5, 2019 | RLD: No | RS: No | Type: RX